FAERS Safety Report 5352742-1 (Version None)
Quarter: 2007Q2

REPORT INFORMATION
  Report Type: 
  Country: None (occurrence: None)
  Receive Date: 20070518
  Receipt Date: 20070406
  Transmission Date: 20071010
  Serious: No
  Sender: FDA-Public Use
  Company Number: TPA2007A00766

PATIENT
  Age: 47 Year
  Sex: Female
  Weight: 52.1637 kg

DRUGS (7)
  1. ROZEREM [Suspect]
     Indication: INSOMNIA
     Dosage: 8 MG, QHS, PER ORAL
     Route: 048
     Dates: start: 20070101
  2. CLARITIN [Concomitant]
  3. UNKNOWN ALLERGY INJECTIONS( ALLERGY MEDICATION) (INJECTION ) [Concomitant]
  4. ESTRADIOL [Concomitant]
  5. PROGESTERONE [Concomitant]
  6. UNKNOWN THYROID MEDICATION (THYROID HORMONES) [Concomitant]
  7. GUAIFENESIN [Concomitant]

REACTIONS (2)
  - DRUG INEFFECTIVE [None]
  - INITIAL INSOMNIA [None]
